FAERS Safety Report 7409912-8 (Version None)
Quarter: 2011Q2

REPORT INFORMATION
  Report Type: 
  Country: None (occurrence: None)
  Receive Date: 20110412
  Receipt Date: 20110407
  Transmission Date: 20111010
  Serious: Yes (Other)
  Sender: FDA-Public Use
  Company Number: KR-ELI_LILLY_AND_COMPANY-KR201104002505

PATIENT
  Sex: Male

DRUGS (1)
  1. HUMULIN N [Suspect]
     Dosage: 38 U, UNKNOWN
     Dates: start: 20100101

REACTIONS (3)
  - HYPERSENSITIVITY [None]
  - MYALGIA [None]
  - PARALYSIS [None]
